FAERS Safety Report 6537498-9 (Version None)
Quarter: 2010Q1

REPORT INFORMATION
  Report Type: 
  Country: None (occurrence: None)
  Receive Date: 20100114
  Receipt Date: 20091215
  Transmission Date: 20100710
  Serious: No
  Sender: FDA-Public Use
  Company Number: US-BAYER-200917163BCC

PATIENT
  Age: 67 Year
  Sex: Male
  Weight: 102 kg

DRUGS (9)
  1. ALEVE (CAPLET) [Suspect]
     Indication: BACK PAIN
     Dosage: TOTAL DAILY DOSE: 440 MG  UNIT DOSE: 220 MG
     Route: 048
     Dates: start: 20090101
  2. ALEVE (CAPLET) [Suspect]
     Dosage: TOTAL DAILY DOSE: 220 MG  UNIT DOSE: 220 MG
     Route: 048
     Dates: start: 20091101
  3. DILTIAZEM [Concomitant]
     Route: 065
  4. SIMVASTATIN [Concomitant]
     Route: 065
  5. LISINOPRIL [Concomitant]
     Route: 065
  6. METFORMIN [Concomitant]
     Route: 065
  7. ST. JOSEPH'S 81 MG ASPIRIN [Concomitant]
     Route: 065
  8. CENTRUM MULTIVITAMIN [Concomitant]
     Route: 065
  9. FISH OIL [Concomitant]
     Route: 065

REACTIONS (3)
  - ABDOMINAL DISCOMFORT [None]
  - INSOMNIA [None]
  - SOMNOLENCE [None]
